FAERS Safety Report 5389507-0 (Version None)
Quarter: 2007Q3

REPORT INFORMATION
  Report Type: 
  Country: None (occurrence: None)
  Receive Date: 20070717
  Receipt Date: 20070705
  Transmission Date: 20080115
  Serious: Yes (Other)
  Sender: FDA-Public Use
  Company Number: US-PFIZER INC-2007055818

PATIENT
  Sex: Female
  Weight: 85.454 kg

DRUGS (7)
  1. LYRICA [Suspect]
     Indication: MIGRAINE
  2. LYRICA [Suspect]
     Indication: PARTIAL SEIZURES
  3. KEPPRA [Suspect]
     Indication: MIGRAINE
  4. KEPPRA [Suspect]
     Indication: PARTIAL SEIZURES
  5. TOPAMAX [Suspect]
     Indication: MIGRAINE
  6. TOPAMAX [Suspect]
     Indication: PARTIAL SEIZURES
  7. MAXALT-MLT [Concomitant]
     Dosage: DAILY DOSE:10MG

REACTIONS (5)
  - CONCUSSION [None]
  - CONVULSION [None]
  - FALL [None]
  - HEAD INJURY [None]
  - WEIGHT INCREASED [None]
